FAERS Safety Report 23838967 (Version 1)
Quarter: 2024Q2

REPORT INFORMATION
  Report Type: Report from Study
  Country: US (occurrence: US)
  Receive Date: 20240509
  Receipt Date: 20240509
  Transmission Date: 20240716
  Serious: No
  Sender: FDA-Public Use
  Company Number: US-ALXN-202405USA000049US

PATIENT

DRUGS (1)
  1. STRENSIQ [Suspect]
     Active Substance: ASFOTASE ALFA
     Indication: Product used for unknown indication
     Dosage: UNK
     Route: 065

REACTIONS (15)
  - Gout [Unknown]
  - Blood testosterone decreased [Unknown]
  - Depression [Unknown]
  - Weight fluctuation [Unknown]
  - Decreased appetite [Unknown]
  - Musculoskeletal stiffness [Unknown]
  - Arthralgia [Unknown]
  - Swelling [Unknown]
  - Asthenia [Unknown]
  - Back pain [Unknown]
  - Dry skin [Unknown]
  - Sleep disorder [Unknown]
  - Blood creatinine increased [Unknown]
  - Carbon dioxide increased [Unknown]
  - Glomerular filtration rate decreased [Unknown]
